FAERS Safety Report 8606781-5 (Version None)
Quarter: 2012Q3

REPORT INFORMATION
  Report Type: 
  Country: None (occurrence: None)
  Receive Date: 20120820
  Receipt Date: 20120808
  Transmission Date: 20120928
  Serious: Yes (Hospitalization)
  Sender: FDA-Public Use
  Company Number: KR-ELI_LILLY_AND_COMPANY-KR201208003275

PATIENT
  Sex: Female
  Weight: 89 kg

DRUGS (2)
  1. BYETTA [Suspect]
     Indication: TYPE 2 DIABETES MELLITUS
     Dosage: 5 UG, BID
     Route: 058
     Dates: start: 20120321
  2. BYETTA [Suspect]
     Dosage: 10 UG, BID
     Route: 058

REACTIONS (2)
  - MUSCULOSKELETAL PAIN [None]
  - NASOPHARYNGITIS [None]
